FAERS Safety Report 19806455 (Version 1)
Quarter: 2021Q3

REPORT INFORMATION
  Report Type: Spontaneous
  Country: JP (occurrence: JP)
  Receive Date: 20210909
  Receipt Date: 20210909
  Transmission Date: 20211014
  Serious: Yes (Hospitalization, Other)
  Sender: FDA-Public Use
  Company Number: JP-LUNDBECK-DKLU3025846

PATIENT
  Age: 12 Month
  Sex: Male
  Weight: 8.3 kg

DRUGS (14)
  1. VIGABATRIN (FOR ORAL SOLUTION) [Suspect]
     Active Substance: VIGABATRIN
     Dosage: 120 MG, BID
     Route: 048
     Dates: start: 20200714, end: 20200719
  2. VIGABATRIN (FOR ORAL SOLUTION) [Suspect]
     Active Substance: VIGABATRIN
     Dosage: 250 MG, BID
     Route: 048
     Dates: start: 20210520
  3. DIAPP [Concomitant]
     Active Substance: DIAZEPAM
     Indication: INFANTILE SPASMS
     Dosage: 4 MG/DAY, PRN
     Route: 054
  4. SODIUM VALPROATE [Concomitant]
     Active Substance: VALPROATE SODIUM
     Dosage: 250 MG/DAY
     Route: 048
     Dates: start: 20210524
  5. SODIUM VALPROATE [Concomitant]
     Active Substance: VALPROATE SODIUM
     Indication: INFANTILE SPASMS
     Dosage: 230 MG/DAY
     Route: 048
     Dates: end: 20200706
  6. VIGABATRIN (FOR ORAL SOLUTION) [Suspect]
     Active Substance: VIGABATRIN
     Dosage: 150 MG, BID
     Route: 048
     Dates: start: 20200720, end: 20200819
  7. CLONAZEPAM. [Concomitant]
     Active Substance: CLONAZEPAM
     Indication: INFANTILE SPASMS
     Dosage: 0.2?0.4 MG/DAY
     Route: 048
     Dates: start: 20201203
  8. VIGABATRIN (FOR ORAL SOLUTION) [Suspect]
     Active Substance: VIGABATRIN
     Dosage: 200 MG, BID
     Route: 048
     Dates: start: 20200820, end: 20200910
  9. VIGABATRIN (FOR ORAL SOLUTION) [Suspect]
     Active Substance: VIGABATRIN
     Dosage: 300 MG, BID
     Route: 048
     Dates: start: 20200925, end: 20201029
  10. VIGABATRIN (FOR ORAL SOLUTION) [Suspect]
     Active Substance: VIGABATRIN
     Dosage: 350 MG, BID
     Route: 048
     Dates: start: 20201030, end: 20210519
  11. L CARTIN FF [Concomitant]
     Active Substance: LEVOCARNITINE
     Indication: PRODUCT USED FOR UNKNOWN INDICATION
     Dosage: 5 ML/DAY
     Route: 048
  12. VIGABATRIN (FOR ORAL SOLUTION) [Suspect]
     Active Substance: VIGABATRIN
     Indication: INFANTILE SPASMS
     Dosage: 60 MG, BID
     Route: 048
     Dates: start: 20200707, end: 20200713
  13. VIGABATRIN (FOR ORAL SOLUTION) [Suspect]
     Active Substance: VIGABATRIN
     Dosage: 250 MG, BID
     Route: 048
     Dates: start: 20200911, end: 20200924
  14. SODIUM VALPROATE [Concomitant]
     Active Substance: VALPROATE SODIUM
     Dosage: 200 MG/DAY
     Route: 048
     Dates: start: 20200707, end: 20210523

REACTIONS (1)
  - Bronchiolitis [Recovered/Resolved]

NARRATIVE: CASE EVENT DATE: 20201207
